FAERS Safety Report 9353364 (Version 2)
Quarter: 2013Q2

REPORT INFORMATION
  Report Type: Spontaneous
  Country: CO (occurrence: CO)
  Receive Date: 20130618
  Receipt Date: 20130624
  Transmission Date: 20140414
  Serious: Yes (Hospitalization)
  Sender: FDA-Public Use
  Company Number: CO-PFIZER INC-2013182427

PATIENT
  Sex: Female

DRUGS (1)
  1. PRISTIQ [Suspect]
     Indication: FATIGUE
     Dosage: 50 MG, 1X/DAY
     Route: 048
     Dates: start: 201303

REACTIONS (2)
  - Fall [Recovering/Resolving]
  - Off label use [Unknown]
